FAERS Safety Report 7820166 (Version 2)
Quarter: 2014Q4

REPORT INFORMATION
  Report Type: Spontaneous
  Country: US (occurrence: US)
  Receive Date: 20110221
  Receipt Date: 20141015
  Transmission Date: 20150529
  Serious: Yes (Other)
  Sender: FDA-Public Use
  Company Number: US-ROCHE-735817

PATIENT
  Sex: Female
  Weight: 87.5 kg

DRUGS (2)
  1. ACCUTANE [Suspect]
     Active Substance: ISOTRETINOIN
     Route: 048
  2. ACCUTANE [Suspect]
     Active Substance: ISOTRETINOIN
     Indication: ACNE
     Route: 048

REACTIONS (9)
  - Colitis ulcerative [Unknown]
  - Inflammatory bowel disease [Unknown]
  - Blood triglycerides increased [Unknown]
  - Blood cholesterol increased [Unknown]
  - Rectal haemorrhage [Unknown]
  - Abdominal pain [Unknown]
  - Nausea [Unknown]
  - Infertility [Unknown]
  - Crohn^s disease [Unknown]

NARRATIVE: CASE EVENT DATE: 2008
